FAERS Safety Report 9790131 (Version 6)
Quarter: 2017Q3

REPORT INFORMATION
  Report Type: Report from Study
  Country: JP (occurrence: JP)
  Receive Date: 20131231
  Receipt Date: 20170814
  Transmission Date: 20171128
  Serious: Yes (Hospitalization, Other)
  Sender: FDA-Public Use
  Company Number: JP-ASTELLAS-2012JP002692

PATIENT
  Age: 71 Year
  Sex: Female

DRUGS (60)
  1. TACROLIMUS. [Suspect]
     Active Substance: TACROLIMUS
     Route: 048
     Dates: start: 20140227, end: 20150408
  2. TACROLIMUS. [Suspect]
     Active Substance: TACROLIMUS
     Route: 048
     Dates: start: 20150409, end: 20160720
  3. WARFARIN                           /00014803/ [Concomitant]
     Active Substance: WARFARIN
     Route: 048
     Dates: start: 20100408, end: 20100512
  4. WARFARIN                           /00014803/ [Concomitant]
     Active Substance: WARFARIN
     Route: 048
     Dates: start: 20100513, end: 20100609
  5. LOCHOL [Concomitant]
     Active Substance: FLUVASTATIN SODIUM
     Route: 048
     Dates: start: 20090903, end: 20100203
  6. VONFENAC [Concomitant]
     Active Substance: DICLOFENAC SODIUM
     Indication: BACK PAIN
     Dosage: ADEQUATE DOSE
     Route: 054
     Dates: end: 20080910
  7. NEUROTROPIN                        /06251301/ [Concomitant]
     Active Substance: ORYCTOLAGUS CUNICULUS SKIN
     Indication: RIB FRACTURE
     Dosage: UNK UNK, UNKNOWN FREQ.
     Route: 065
     Dates: start: 2013
  8. TACROLIMUS. [Suspect]
     Active Substance: TACROLIMUS
     Route: 048
     Dates: start: 20131212, end: 20140226
  9. PREDNISOLONE. [Suspect]
     Active Substance: PREDNISOLONE
     Route: 048
     Dates: start: 20130411, end: 20130814
  10. WARFARIN                           /00014803/ [Concomitant]
     Active Substance: WARFARIN
     Indication: PROPHYLAXIS
     Route: 048
     Dates: end: 20100203
  11. WARFARIN                           /00014803/ [Concomitant]
     Active Substance: WARFARIN
     Route: 048
     Dates: start: 20120913, end: 20130703
  12. FORTEO [Concomitant]
     Active Substance: TERIPARATIDE
     Indication: PROPHYLAXIS
  13. WARFARIN                           /00014803/ [Concomitant]
     Active Substance: WARFARIN
     Route: 048
     Dates: start: 20140327, end: 20140604
  14. WARFARIN                           /00014803/ [Concomitant]
     Active Substance: WARFARIN
     Route: 048
     Dates: start: 20140605, end: 20140924
  15. VONFENAC [Concomitant]
     Active Substance: DICLOFENAC SODIUM
     Indication: RADIUS FRACTURE
  16. VONFENAC [Concomitant]
     Active Substance: DICLOFENAC SODIUM
     Indication: HUMERUS FRACTURE
  17. TOYOFAROL [Concomitant]
     Active Substance: ALFACALCIDOL
     Indication: OSTEOPOROSIS
     Dosage: 0.25 ?G, ONCE DAILY
     Route: 048
     Dates: start: 20111207
  18. MAGNESIUM OXIDE. [Concomitant]
     Active Substance: MAGNESIUM OXIDE
     Indication: ILEUS
     Route: 048
     Dates: start: 20120824, end: 20130116
  19. MAGNESIUM OXIDE. [Concomitant]
     Active Substance: MAGNESIUM OXIDE
     Indication: CONSTIPATION
     Route: 048
     Dates: start: 20130117, end: 20151014
  20. MAGNESIUM OXIDE. [Concomitant]
     Active Substance: MAGNESIUM OXIDE
     Route: 048
     Dates: start: 20160204
  21. PRALIA [Concomitant]
     Active Substance: DENOSUMAB
     Indication: OSTEOPOROSIS
     Dosage: 60 MG, EVERY 6 MONTHS
     Route: 058
     Dates: start: 20140604
  22. PREDNISOLONE. [Suspect]
     Active Substance: PREDNISOLONE
     Route: 048
     Dates: start: 20120329, end: 20130410
  23. JUVELA N [Concomitant]
     Active Substance: TOCOPHERYL NICOTINATE, D-.ALPHA.
     Indication: PERIPHERAL CIRCULATORY FAILURE
     Route: 048
     Dates: end: 20111207
  24. SELBEX [Concomitant]
     Active Substance: TEPRENONE
     Indication: PROPHYLAXIS
     Route: 048
     Dates: end: 20090805
  25. METHYCOBAL [Concomitant]
     Active Substance: METHYLCOBALAMIN
     Indication: NEUROPATHY PERIPHERAL
     Route: 048
     Dates: end: 20111207
  26. WARFARIN                           /00014803/ [Concomitant]
     Active Substance: WARFARIN
     Route: 048
     Dates: start: 20140312, end: 20140326
  27. LOCHOL [Concomitant]
     Active Substance: FLUVASTATIN SODIUM
     Route: 048
     Dates: start: 20110630, end: 20120718
  28. BLOSTAR M [Concomitant]
     Indication: PROPHYLAXIS
     Route: 048
     Dates: end: 20120718
  29. BONALON [Concomitant]
     Active Substance: ALENDRONATE SODIUM
     Indication: OSTEOPOROSIS
     Route: 048
     Dates: end: 20101110
  30. VONFENAC [Concomitant]
     Active Substance: DICLOFENAC SODIUM
     Indication: FEMUR FRACTURE
     Route: 054
     Dates: start: 20140307, end: 20140313
  31. PURSENNID [Concomitant]
     Active Substance: SENNOSIDES A AND B
     Indication: CONSTIPATION
     Route: 048
     Dates: start: 20081106, end: 20090204
  32. LOXONIN [Concomitant]
     Active Substance: LOXOPROFEN SODIUM
     Indication: RADIUS FRACTURE
  33. TACROLIMUS. [Suspect]
     Active Substance: TACROLIMUS
     Indication: LUPUS NEPHRITIS
     Route: 048
     Dates: start: 20080814, end: 20131211
  34. PREDNISOLONE. [Suspect]
     Active Substance: PREDNISOLONE
     Indication: LUPUS NEPHRITIS
     Route: 048
     Dates: end: 20091111
  35. PREDNISOLONE. [Suspect]
     Active Substance: PREDNISOLONE
     Route: 048
     Dates: start: 20101007, end: 20111012
  36. WARFARIN                           /00014803/ [Concomitant]
     Active Substance: WARFARIN
     Route: 048
     Dates: start: 20130704, end: 20140305
  37. BONALON [Concomitant]
     Active Substance: ALENDRONATE SODIUM
     Route: 048
     Dates: start: 20130704, end: 20140305
  38. PURSENNID [Concomitant]
     Active Substance: SENNOSIDES A AND B
     Route: 048
     Dates: start: 20090709, end: 20090902
  39. LORFENAMIN [Concomitant]
     Active Substance: LOXOPROFEN
     Indication: GINGIVAL PAIN
     Route: 048
     Dates: start: 20110215, end: 20110217
  40. LOXONIN [Concomitant]
     Active Substance: LOXOPROFEN SODIUM
     Indication: HUMERUS FRACTURE
  41. PREDNISOLONE. [Suspect]
     Active Substance: PREDNISOLONE
     Route: 048
     Dates: start: 20111013, end: 20120328
  42. PREDNISOLONE. [Suspect]
     Active Substance: PREDNISOLONE
     Route: 048
     Dates: start: 20140814
  43. SELBEX [Concomitant]
     Active Substance: TEPRENONE
     Route: 048
     Dates: start: 20090903, end: 20091209
  44. WARFARIN                           /00014803/ [Concomitant]
     Active Substance: WARFARIN
     Route: 048
     Dates: start: 20100204, end: 20100407
  45. WARFARIN                           /00014803/ [Concomitant]
     Active Substance: WARFARIN
     Route: 048
     Dates: start: 20100610, end: 20120912
  46. BONALON [Concomitant]
     Active Substance: ALENDRONATE SODIUM
     Indication: OSTEOPOROSIS PROPHYLAXIS
     Route: 048
     Dates: start: 20110407, end: 20111012
  47. VONFENAC [Concomitant]
     Active Substance: DICLOFENAC SODIUM
     Indication: RIB FRACTURE
     Route: 054
     Dates: start: 20130411, end: 20130522
  48. TOYOFAROL [Concomitant]
     Active Substance: ALFACALCIDOL
     Indication: OSTEOPOROSIS PROPHYLAXIS
  49. FORTEO [Concomitant]
     Active Substance: TERIPARATIDE
     Indication: OSTEOPOROSIS
     Route: 065
     Dates: start: 20111012, end: 20130703
  50. PL [Concomitant]
     Active Substance: ACETAMINOPHEN\CAFFEINE\PROMETHAZINE\SALICYLAMIDE
     Indication: VIRAL UPPER RESPIRATORY TRACT INFECTION
     Route: 048
     Dates: start: 20130228, end: 20130304
  51. LOXONIN [Concomitant]
     Active Substance: LOXOPROFEN SODIUM
     Indication: FEMUR FRACTURE
     Route: 048
     Dates: start: 20140313, end: 20140409
  52. PRALIA [Concomitant]
     Active Substance: DENOSUMAB
     Indication: OSTEOPOROSIS PROPHYLAXIS
  53. BLOSTAR M [Concomitant]
     Route: 048
     Dates: start: 20120719
  54. TACROLIMUS. [Suspect]
     Active Substance: TACROLIMUS
     Route: 048
     Dates: start: 20160721
  55. PREDNISOLONE. [Suspect]
     Active Substance: PREDNISOLONE
     Route: 048
     Dates: start: 20091112, end: 20101006
  56. PREDNISOLONE. [Suspect]
     Active Substance: PREDNISOLONE
     Route: 048
     Dates: start: 20130815, end: 20140813
  57. SELBEX [Concomitant]
     Active Substance: TEPRENONE
     Route: 048
     Dates: start: 20100408, end: 20110112
  58. WARFARIN                           /00014803/ [Concomitant]
     Active Substance: WARFARIN
     Route: 048
     Dates: start: 20140925
  59. LOCHOL [Concomitant]
     Active Substance: FLUVASTATIN SODIUM
     Indication: HYPERCHOLESTEROLAEMIA
     Route: 048
     Dates: end: 20090805
  60. LORFENAMIN [Concomitant]
     Active Substance: LOXOPROFEN
     Indication: RIB FRACTURE
     Dosage: UNK UNK, UNKNOWN FREQ.
     Route: 048
     Dates: start: 2013

REACTIONS (10)
  - Nasopharyngitis [Recovered/Resolved]
  - Femur fracture [Recovered/Resolved]
  - Ileus [Recovered/Resolved]
  - Constipation [Not Recovered/Not Resolved]
  - Radius fracture [Recovered/Resolved]
  - Gingival pain [Recovered/Resolved]
  - Constipation [Recovering/Resolving]
  - Anaemia [Recovered/Resolved]
  - Rib fracture [Recovered/Resolved]
  - Humerus fracture [Recovered/Resolved]

NARRATIVE: CASE EVENT DATE: 20110215
